FAERS Safety Report 4632487-3 (Version None)
Quarter: 2005Q2

REPORT INFORMATION
  Report Type: 
  Country: None (occurrence: None)
  Receive Date: 20050411
  Receipt Date: 20050330
  Transmission Date: 20051028
  Serious: Yes (Hospitalization)
  Sender: FDA-Public Use
  Company Number: FR-BRISTOL-MYERS SQUIBB COMPANY-12916730

PATIENT
  Age: 80 Year
  Sex: Male
  Weight: 60 kg

DRUGS (6)
  1. COUMADIN [Suspect]
     Indication: ATRIAL FIBRILLATION
     Dosage: 5MG TABLET, 2.5MG/DAY
     Route: 048
     Dates: end: 20050301
  2. COUMADIN [Suspect]
     Indication: ATRIAL FLUTTER
     Dosage: 5MG TABLET, 2.5MG/DAY
     Route: 048
     Dates: end: 20050301
  3. ARESTAL [Concomitant]
     Dates: end: 20050301
  4. MEDIATENSYL [Concomitant]
     Dates: end: 20050301
  5. ZOPICLONE [Concomitant]
     Dates: end: 20050301
  6. CIBADREX [Concomitant]
     Dosage: 10MG/12.5MG, 1/DAY
     Dates: end: 20050301

REACTIONS (4)
  - CEREBRAL HAEMORRHAGE [None]
  - CONFUSIONAL STATE [None]
  - HAEMATOMA [None]
  - HEMIANOPIA HOMONYMOUS [None]
